FAERS Safety Report 25407278 (Version 1)
Quarter: 2025Q2

REPORT INFORMATION
  Report Type: Spontaneous
  Country: US (occurrence: None)
  Receive Date: 20250606
  Receipt Date: 20250606
  Transmission Date: 20250717
  Serious: Yes (Other)
  Sender: FDA-CTU
  Company Number: None

PATIENT
  Age: 32 Year
  Sex: Male
  Weight: 88.0 kg

DRUGS (1)
  1. TOPAMAX [Suspect]
     Active Substance: TOPIRAMATE
     Indication: Alcoholism
     Dates: start: 20250603, end: 20250604

REACTIONS (3)
  - Fall [None]
  - Brain fog [None]
  - Hypoaesthesia [None]

NARRATIVE: CASE EVENT DATE: 20250605
